FAERS Safety Report 7516631-6 (Version None)
Quarter: 2011Q2

REPORT INFORMATION
  Report Type: 
  Country: None (occurrence: None)
  Receive Date: 20110601
  Receipt Date: 20110516
  Transmission Date: 20111010
  Serious: No
  Sender: FDA-Public Use
  Company Number: US-B.I. PHARMACEUTICALS,INC./RIDGEFIELD-2011-BP-13263BP

PATIENT
  Sex: Female

DRUGS (21)
  1. SPIRIVA [Suspect]
     Indication: EMPHYSEMA
     Dosage: 18 MCG
     Route: 055
     Dates: start: 20110201
  2. PREMARIN [Concomitant]
     Indication: BLOOD OESTROGEN
  3. ASPIRIN [Concomitant]
  4. LIPITOR [Concomitant]
     Indication: BLOOD CHOLESTEROL INCREASED
  5. CLARITIN [Concomitant]
     Indication: MULTIPLE ALLERGIES
  6. PROAIR HFA [Concomitant]
     Indication: MULTIPLE ALLERGIES
     Route: 055
  7. GLUCOPHAGE [Concomitant]
     Indication: DIABETES MELLITUS
  8. NORVASC [Concomitant]
     Indication: HYPERTENSION
  9. ALBUTEROL SULFATE AUTOHALER [Concomitant]
     Indication: ASTHMA
  10. ARICEPT [Concomitant]
  11. NOVALOG [Concomitant]
     Indication: DIABETES MELLITUS
  12. CELEBREX [Concomitant]
     Indication: BONE PAIN
  13. ADVAIR DISKUS 100/50 [Concomitant]
     Indication: ASTHMA
  14. TAGAMET [Concomitant]
     Indication: GASTROOESOPHAGEAL REFLUX DISEASE
  15. NASONEX [Concomitant]
     Indication: MULTIPLE ALLERGIES
  16. FIORICET/ACETAMINAPHEN [Concomitant]
     Indication: HEADACHE
  17. REGLAN [Concomitant]
     Indication: DYSPEPSIA
  18. IPATROPIUM BROMIDE [Concomitant]
     Indication: ASTHMA
  19. STAHIST [Concomitant]
     Indication: MULTIPLE ALLERGIES
  20. LANTUS [Concomitant]
     Indication: DIABETES MELLITUS
  21. LYRICA [Concomitant]
     Indication: BONE PAIN

REACTIONS (3)
  - CHILLS [None]
  - FEELING COLD [None]
  - PYREXIA [None]
